FAERS Safety Report 6613921-6 (Version None)
Quarter: 2010Q1

REPORT INFORMATION
  Report Type: 
  Country: None (occurrence: None)
  Receive Date: 20100304
  Receipt Date: 20100223
  Transmission Date: 20100710
  Serious: Yes (Hospitalization)
  Sender: FDA-Public Use
  Company Number: A0848058A

PATIENT
  Age: 16 Year
  Sex: Male

DRUGS (5)
  1. LAMICTAL [Suspect]
     Indication: DRUG USE FOR UNKNOWN INDICATION
     Dosage: 25MG UNKNOWN
     Route: 048
  2. UNSPECIFIED MEDICATION [Concomitant]
  3. MELATONIN [Concomitant]
  4. ALEVE (CAPLET) [Concomitant]
  5. MULTI-VITAMIN [Concomitant]

REACTIONS (2)
  - CYANOSIS [None]
  - SKIN DISCOLOURATION [None]
